FAERS Safety Report 25032797 (Version 1)
Quarter: 2025Q1

REPORT INFORMATION
  Report Type: Report from Study
  Country: BR (occurrence: BR)
  Receive Date: 20250303
  Receipt Date: 20250303
  Transmission Date: 20250409
  Serious: Yes (Other)
  Sender: TAKEDA
  Company Number: BR-TAKEDA-2025TUS021620

PATIENT
  Sex: Male

DRUGS (4)
  1. HEMO-8R [Suspect]
     Active Substance: ANTIHEMOPHILIC FACTOR, HUMAN RECOMBINANT
     Indication: Factor VIII deficiency
     Dosage: 500 INTERNATIONAL UNIT, 3/WEEK
  2. HEMO-8R [Suspect]
     Active Substance: ANTIHEMOPHILIC FACTOR, HUMAN RECOMBINANT
     Indication: Prophylaxis
  3. FEIBA NF [Suspect]
     Active Substance: ANTI-INHIBITOR COAGULANT COMPLEX
     Indication: Product used for unknown indication
  4. INFLUENZA VIRUS VACCINE [Suspect]
     Active Substance: INFLUENZA VIRUS VACCINE
     Indication: Product used for unknown indication

REACTIONS (4)
  - Drug ineffective [Unknown]
  - Internal haemorrhage [Recovered/Resolved]
  - Allergy to vaccine [Recovered/Resolved]
  - Peripheral swelling [Recovered/Resolved]
